FAERS Safety Report 9401311 (Version 3)
Quarter: 2013Q4

REPORT INFORMATION
  Report Type: Spontaneous
  Country: US (occurrence: US)
  Receive Date: 20130715
  Receipt Date: 20131002
  Transmission Date: 20140711
  Serious: Yes (Life-Threatening, Disabling)
  Sender: FDA-Public Use
  Company Number: US-MERCK-1307USA006354

PATIENT
  Age: 28 Year
  Sex: Male
  Weight: 98.41 kg

DRUGS (14)
  1. SAPHRIS [Suspect]
     Indication: BIPOLAR DISORDER
     Dosage: 5 MG, BID
     Route: 060
     Dates: start: 20121018
  2. VITAMIN D (UNSPECIFIED) [Concomitant]
  3. ALBUTEROL [Concomitant]
  4. CODEINE [Concomitant]
  5. CETIRIZINE HYDROCHLORIDE [Concomitant]
  6. AMITRIPTYLINE HYDROCHLORIDE [Concomitant]
  7. ATENOLOL [Concomitant]
  8. BUPROPION HYDROCHLORIDE [Concomitant]
  9. CYCLOBENZAPRINE HYDROCHLORIDE [Concomitant]
  10. LORAZEPAM [Concomitant]
  11. MELOXICAM [Concomitant]
  12. PROMETHAZINE [Concomitant]
  13. EFFEXOR [Concomitant]
  14. AMBIEN [Concomitant]

REACTIONS (2)
  - Feeling abnormal [Recovering/Resolving]
  - Hyperglycaemia [Recovering/Resolving]
